FAERS Safety Report 17082537 (Version 2)
Quarter: 2019Q4

REPORT INFORMATION
  Report Type: Spontaneous
  Country: US (occurrence: US)
  Receive Date: 20191127
  Receipt Date: 20191218
  Transmission Date: 20200122
  Serious: Yes (Other)
  Sender: FDA-Public Use
  Company Number: US-PFIZER INC-2019494015

PATIENT

DRUGS (1)
  1. ROBITUSSIN (GUAIFENESIN) [Suspect]
     Active Substance: GUAIFENESIN
     Dosage: UNK

REACTIONS (2)
  - Seizure [Unknown]
  - Reaction to excipient [Unknown]
